FAERS Safety Report 15835887 (Version 1)
Quarter: 2019Q1

REPORT INFORMATION
  Report Type: Spontaneous
  Country: US (occurrence: US)
  Receive Date: 20190117
  Receipt Date: 20190117
  Transmission Date: 20190417
  Serious: Yes (Other)
  Sender: FDA-Public Use
  Company Number: US-ABBVIE-18P-163-2598312-00

PATIENT
  Age: 1 Year
  Sex: Male
  Weight: 8.8 kg

DRUGS (6)
  1. SYNAGIS [Suspect]
     Active Substance: PALIVIZUMAB
     Indication: BRONCHOPULMONARY DYSPLASIA
     Route: 030
     Dates: start: 20180206
  2. SYNAGIS [Suspect]
     Active Substance: PALIVIZUMAB
     Indication: LOW BIRTH WEIGHT BABY
  3. ALBUTEROL. [Concomitant]
     Active Substance: ALBUTEROL
     Indication: PRODUCT USED FOR UNKNOWN INDICATION
     Dosage: 0.883 ERCENT, 1 Q 4-6 HRS, PRN VIA NEBULIZER
     Dates: start: 20181120
  4. PULMICORT TURBUHALER [Concomitant]
     Active Substance: BUDESONIDE
     Indication: DYSPLASIA
     Dosage: 0.5 MG/2 ML, 1 BID
     Route: 055
     Dates: start: 20180220
  5. SYNAGIS [Suspect]
     Active Substance: PALIVIZUMAB
     Indication: PREMATURE BABY
  6. RANITIDINE. [Concomitant]
     Active Substance: RANITIDINE
     Indication: PRODUCT USED FOR UNKNOWN INDICATION
     Dosage: 15 MG/ML, 2.5 ML BID
     Dates: start: 20180410

REACTIONS (2)
  - Bronchiolitis [Unknown]
  - Weight decreased [Unknown]

NARRATIVE: CASE EVENT DATE: 20181128
